FAERS Safety Report 10210579 (Version 1)
Quarter: 2014Q2

REPORT INFORMATION
  Report Type: Spontaneous
  Country: US (occurrence: None)
  Receive Date: 20140530
  Receipt Date: 20140530
  Transmission Date: 20141212
  Serious: Yes (Death)
  Sender: FDA-Public Use
  Company Number: None

PATIENT
  Age: 63 Year
  Sex: Female
  Weight: 67.6 kg

DRUGS (1)
  1. SORAFENIB [Suspect]
     Indication: ACUTE MYELOID LEUKAEMIA
     Dosage: 2 PILLS, BID, ORAL,SORAFENIB 200 MG PO BID 3/5/2014 THEN INCREASEED
     Route: 048
     Dates: start: 20140305, end: 20140508

REACTIONS (2)
  - Gastrointestinal haemorrhage [None]
  - Large intestine perforation [None]
